FAERS Safety Report 12982882 (Version 1)
Quarter: 2016Q4

REPORT INFORMATION
  Report Type: Report from Study
  Country: US (occurrence: US)
  Receive Date: 20161129
  Receipt Date: 20161129
  Transmission Date: 20170207
  Serious: Yes (Disabling, Other)
  Sender: FDA-Public Use
  Company Number: US-REGENERON PHARMACEUTICALS, INC.-2016-23461

PATIENT

DRUGS (1)
  1. EYLEA [Suspect]
     Active Substance: AFLIBERCEPT
     Indication: MACULAR DEGENERATION
     Dosage: LEFT EYE (OS), ABOUT EVERY 2 MONTHS
     Route: 031
     Dates: start: 201303

REACTIONS (4)
  - Drug ineffective [Unknown]
  - Visual acuity reduced [Unknown]
  - Blindness transient [Unknown]
  - Eye infection [Recovered/Resolved]
